FAERS Safety Report 25005031 (Version 1)
Quarter: 2025Q1

REPORT INFORMATION
  Report Type: Spontaneous
  Country: JP (occurrence: JP)
  Receive Date: 20250224
  Receipt Date: 20250224
  Transmission Date: 20250408
  Serious: Yes (Other)
  Sender: MERCK SHARP & DOHME LLC
  Company Number: JP-009507513-2254088

PATIENT
  Age: 3 Month
  Sex: Female

DRUGS (4)
  1. LETERMOVIR [Suspect]
     Active Substance: LETERMOVIR
     Indication: Pneumonitis
     Route: 048
  2. CIDOFOVIR [Suspect]
     Active Substance: CIDOFOVIR
     Indication: Pneumonitis
  3. LEFLUNOMIDE [Suspect]
     Active Substance: LEFLUNOMIDE
     Indication: Pneumonitis
  4. ARTESUNATE [Suspect]
     Active Substance: ARTESUNATE
     Indication: Pneumonitis

REACTIONS (4)
  - Pulmonary haemorrhage [Unknown]
  - Pneumonitis [Unknown]
  - Off label use [Unknown]
  - Pulmonary toxicity [Unknown]
